FAERS Safety Report 13382243 (Version 5)
Quarter: 2017Q4

REPORT INFORMATION
  Report Type: Spontaneous
  Country: JP (occurrence: JP)
  Receive Date: 20170329
  Receipt Date: 20171229
  Transmission Date: 20180320
  Serious: Yes (Death, Other)
  Sender: FDA-Public Use
  Company Number: JP-009507513-1703JPN002352J

PATIENT
  Age: 53 Year
  Sex: Female
  Weight: 31 kg

DRUGS (8)
  1. KEYTRUDA [Suspect]
     Active Substance: PEMBROLIZUMAB
     Indication: LUNG ADENOCARCINOMA STAGE IV
     Dosage: 200 MG, Q3W
     Route: 041
     Dates: start: 20170215, end: 20170307
  2. FEXOFENADINE HYDROCHLORIDE. [Concomitant]
     Active Substance: FEXOFENADINE HYDROCHLORIDE
     Dosage: 60 MG, BID
     Route: 048
  3. DAIPHEN [Concomitant]
     Active Substance: SULFAMETHOXAZOLE\TRIMETHOPRIM
     Indication: PROPHYLAXIS
     Dosage: 1 DF, QD
     Route: 048
  4. NEXIUM [Concomitant]
     Active Substance: ESOMEPRAZOLE MAGNESIUM
     Indication: PROPHYLAXIS
     Dosage: 1 DF, QD
     Route: 048
  5. CELECOX [Concomitant]
     Active Substance: CELECOXIB
     Indication: LUNG ADENOCARCINOMA STAGE IV
     Dosage: 100 MG, BID
     Route: 048
  6. ISOSORBIDE. [Concomitant]
     Active Substance: ISOSORBIDE
     Indication: LUNG ADENOCARCINOMA STAGE IV
     Dosage: 40 ML, TID
     Route: 048
  7. CERCINE [Concomitant]
     Active Substance: DIAZEPAM
     Indication: PROPHYLAXIS
     Dosage: 3 ML, TID
     Route: 048
  8. BETAMETHASONE. [Concomitant]
     Active Substance: BETAMETHASONE
     Indication: LUNG ADENOCARCINOMA STAGE IV
     Dosage: 2 MG, QD
     Route: 048

REACTIONS (2)
  - Malignant neoplasm progression [Fatal]
  - Fall [Unknown]

NARRATIVE: CASE EVENT DATE: 20170313
